FAERS Safety Report 19853854 (Version 6)
Quarter: 2024Q2

REPORT INFORMATION
  Report Type: Spontaneous
  Country: IT (occurrence: IT)
  Receive Date: 20210920
  Receipt Date: 20240419
  Transmission Date: 20240716
  Serious: Yes (Hospitalization, Other)
  Sender: FDA-Public Use
  Company Number: IT-ROCHE-2168226

PATIENT
  Age: 65 Year
  Sex: Female
  Weight: 55 kg

DRUGS (60)
  1. DOCETAXEL [Suspect]
     Active Substance: DOCETAXEL\DOCETAXEL ANHYDROUS
     Indication: HER2 positive breast cancer
     Dosage: 75 MG/M2 3 WEEKS,LAST DOSE ON 19-JUN-2018
     Route: 042
     Dates: start: 20180507
  2. DOCETAXEL [Suspect]
     Active Substance: DOCETAXEL\DOCETAXEL ANHYDROUS
     Indication: Breast cancer
  3. EXEMESTANE [Suspect]
     Active Substance: EXEMESTANE
     Indication: Breast cancer
     Dosage: 1 MILLIGRAM, ONCE A DAY
     Route: 048
     Dates: start: 20190213, end: 20191030
  4. EXEMESTANE [Suspect]
     Active Substance: EXEMESTANE
     Indication: HER2 positive breast cancer
  5. PACLITAXEL [Suspect]
     Active Substance: PACLITAXEL
     Indication: HER2 positive breast cancer
     Dosage: 80 MILLIGRAM/SQ. METER, EVERY WEEK
     Route: 042
     Dates: start: 20180731
  6. PACLITAXEL [Suspect]
     Active Substance: PACLITAXEL
     Indication: Breast cancer
  7. NAVELBINE [Suspect]
     Active Substance: VINORELBINE TARTRATE
     Indication: Breast cancer
     Dosage: 30 MILLIGRAM/SQ. METER
     Route: 042
     Dates: start: 20201016, end: 20210211
  8. NAVELBINE [Suspect]
     Active Substance: VINORELBINE TARTRATE
     Indication: HER2 positive breast cancer
  9. EXEMESTANE [Suspect]
     Active Substance: EXEMESTANE
     Indication: HER2 positive breast cancer
     Dosage: 1 MILLIGRAM, ONCE A DAY
     Route: 048
     Dates: start: 20190213, end: 20191030
  10. CAPECITABINE [Suspect]
     Active Substance: CAPECITABINE
     Indication: HER2 positive breast cancer
     Dosage: 2000 MILLIGRAM/SQ. METER, ONCE A DAY
     Route: 048
     Dates: start: 20200220, end: 20201001
  11. CAPECITABINE [Suspect]
     Active Substance: CAPECITABINE
     Indication: Breast cancer
     Dosage: 3000 MILLIGRAM/SQ. METER, ONCE A DAY(MOST RECENT DOSE OF CAPECITABINE WAS RECEIVED ON 01/OCT/2020, 2
     Route: 048
     Dates: start: 20200220, end: 20200529
  12. CAPECITABINE [Suspect]
     Active Substance: CAPECITABINE
     Dosage: 2500 MILLIGRAM/SQ. METER, ONCE A DAY
     Route: 048
     Dates: start: 20200530, end: 20200618
  13. CAPECITABINE [Suspect]
     Active Substance: CAPECITABINE
     Dosage: 2000 MILLIGRAM/SQ. METER, ONCE A DAY
     Route: 048
     Dates: start: 20200619, end: 20201017
  14. CAPECITABINE [Suspect]
     Active Substance: CAPECITABINE
     Dosage: 750 MILLIGRAM/SQ. METER, TWO TIMES A DAY
     Route: 048
     Dates: start: 20210322, end: 20211220
  15. XGEVA [Suspect]
     Active Substance: DENOSUMAB
     Indication: Breast cancer
     Dosage: 60 MILLIGRAM, 1 MONTH (OTHER IMMUNOTHERAPY)
     Route: 058
     Dates: start: 20181009, end: 20200618
  16. XGEVA [Suspect]
     Active Substance: DENOSUMAB
     Indication: HER2 positive breast cancer
  17. TYKERB [Suspect]
     Active Substance: LAPATINIB DITOSYLATE
     Indication: HER2 positive breast cancer
     Dosage: 1250 MILLIGRAM, ONCE A DAY,MOST RECENT DOSE: 07/OCT/2020
     Route: 048
     Dates: start: 20200220, end: 20201007
  18. PERJETA [Suspect]
     Active Substance: PERTUZUMAB
     Indication: HER2 positive breast cancer
     Dosage: 840 MILLIGRAM, FOR 3 WEEKS
     Route: 042
     Dates: start: 20180507, end: 20180529
  19. PERJETA [Suspect]
     Active Substance: PERTUZUMAB
     Indication: Breast cancer
     Dosage: 420 MILLIGRAM,FOR 3 WEEKS
     Route: 042
     Dates: start: 20180529, end: 20190531
  20. TAXOTERE [Suspect]
     Active Substance: DOCETAXEL
     Indication: HER2 positive breast cancer
     Dosage: 75 MILLIGRAM/SQ. METER, FOR 3 WEEKS
     Route: 042
     Dates: start: 20180507
  21. HERCEPTIN [Suspect]
     Active Substance: TRASTUZUMAB
     Indication: HER2 positive breast cancer
     Dosage: 440 MILLIGRAM, FOR 3 WEEKS
     Route: 042
     Dates: start: 20180507, end: 20180529
  22. HERCEPTIN [Suspect]
     Active Substance: TRASTUZUMAB
     Indication: Breast cancer
     Dosage: 318 MILLIGRAM
     Route: 042
     Dates: start: 20180529, end: 20190531
  23. HERCEPTIN [Suspect]
     Active Substance: TRASTUZUMAB
     Dosage: 6 MILLIGRAM/KILOGRAM, FOR 3 WEEKS
     Route: 042
     Dates: start: 20201016, end: 20201016
  24. HERCEPTIN [Suspect]
     Active Substance: TRASTUZUMAB
     Dosage: 6 MILLIGRAM/KILOGRAM, FOR 3 WEEKS
     Route: 042
     Dates: start: 20201105, end: 20201126
  25. HERCEPTIN [Suspect]
     Active Substance: TRASTUZUMAB
     Dosage: 6 MILLIGRAM/KILOGRAM, FOR 3 WEEKS
     Route: 042
     Dates: start: 20201018, end: 20210204
  26. KADCYLA [Suspect]
     Active Substance: ADO-TRASTUZUMAB EMTANSINE
     Indication: HER2 positive breast cancer
     Dosage: 3.6 MILLIGRAM/KILOGRAM, FOR 3 WEEKS
     Route: 042
     Dates: start: 20191009, end: 20200109
  27. KADCYLA [Suspect]
     Active Substance: ADO-TRASTUZUMAB EMTANSINE
     Indication: Breast cancer
  28. TAXOL [Suspect]
     Active Substance: PACLITAXEL
     Indication: Breast cancer
     Dosage: 80 MILLIGRAM/SQ. METER, EVERY WEEK
     Route: 042
     Dates: start: 20180731
  29. NERATINIB [Suspect]
     Active Substance: NERATINIB
     Indication: HER2 positive breast cancer
     Dosage: 240 MILLIGRAM, ONCE A DAY
     Route: 048
     Dates: start: 20210317
  30. ARIXTRA [Concomitant]
     Active Substance: FONDAPARINUX SODIUM
     Indication: Thrombosis
     Dosage: UNK
     Route: 065
     Dates: start: 20200806
  31. AMIKACIN [Concomitant]
     Active Substance: AMIKACIN
     Indication: Febrile neutropenia
     Dosage: UNK
     Route: 065
     Dates: start: 20180630
  32. BISOPROLOL [Concomitant]
     Active Substance: BISOPROLOL\BISOPROLOL FUMARATE
     Indication: Hypertension
     Dosage: UNK
     Route: 065
     Dates: start: 20190701
  33. Cacit [Concomitant]
     Indication: Product used for unknown indication
     Dosage: UNK
     Route: 065
     Dates: start: 20180727
  34. Cacit [Concomitant]
     Dosage: UNK
     Route: 065
     Dates: start: 20180915
  35. CALCIUM\VITAMIN D [Concomitant]
     Active Substance: CALCIUM\VITAMIN D
     Indication: Product used for unknown indication
     Dosage: UNK
     Route: 065
     Dates: start: 20180915
  36. CEFEPIME [Concomitant]
     Active Substance: CEFEPIME HYDROCHLORIDE
     Indication: Febrile neutropenia
     Dosage: UNK
     Route: 065
     Dates: start: 20180626
  37. CHLORPHENIRAMINE MALEATE [Concomitant]
     Active Substance: CHLORPHENIRAMINE MALEATE
     Indication: Product used for unknown indication
     Dosage: UNK
     Route: 065
     Dates: start: 20180507
  38. DEXAMETHASONE [Concomitant]
     Active Substance: DEXAMETHASONE
     Indication: Product used for unknown indication
     Dosage: UNK
     Route: 065
     Dates: start: 20180507
  39. CHOLECALCIFEROL [Concomitant]
     Active Substance: CHOLECALCIFEROL
     Indication: Product used for unknown indication
     Dosage: UNK
     Route: 065
     Dates: start: 20180727
  40. FENTANYL [Concomitant]
     Active Substance: FENTANYL\FENTANYL CITRATE
     Indication: Product used for unknown indication
     Dosage: UNK
     Route: 065
     Dates: start: 20180502
  41. ENALAPRIL MALEATE [Concomitant]
     Active Substance: ENALAPRIL MALEATE
     Indication: Product used for unknown indication
     Dosage: UNK
     Route: 065
  42. LEVOTHYROXINE SODIUM [Concomitant]
     Active Substance: LEVOTHYROXINE SODIUM
     Indication: Product used for unknown indication
     Dosage: UNK
     Route: 065
  43. FLUCONAZOLE [Concomitant]
     Active Substance: FLUCONAZOLE
     Indication: Dysgeusia
     Dosage: UNK
     Route: 065
     Dates: start: 20180626
  44. LEVOFLOXACIN [Concomitant]
     Active Substance: LEVOFLOXACIN
     Indication: Febrile neutropenia
     Dosage: UNK
     Route: 065
     Dates: start: 20180626
  45. METOCLOPRAMIDE [Concomitant]
     Active Substance: METOCLOPRAMIDE
     Indication: Product used for unknown indication
     Dosage: UNK
     Route: 065
     Dates: start: 20180625
  46. MYCOSTATIN [Concomitant]
     Active Substance: NYSTATIN
     Indication: Dysphagia
     Dosage: UNK
     Route: 065
     Dates: start: 20180615
  47. CALCIUM CARBONATE\CHOLECALCIFEROL [Concomitant]
     Active Substance: CALCIUM CARBONATE\CHOLECALCIFEROL
     Indication: Product used for unknown indication
     Dosage: UNK
     Route: 065
     Dates: start: 20190615
  48. PANTOPRAZOLE [Concomitant]
     Active Substance: PANTOPRAZOLE
     Indication: Product used for unknown indication
     Dosage: UNK
     Route: 065
     Dates: start: 20191015
  49. METOCLOPRAMIDE HYDROCHLORIDE [Concomitant]
     Active Substance: METOCLOPRAMIDE HYDROCHLORIDE
     Indication: Nausea
     Dosage: UNK
     Route: 065
     Dates: start: 20180625
  50. MAGNESIUM ASPARTATE\POTASSIUM ASPARTATE [Concomitant]
     Active Substance: MAGNESIUM ASPARTATE\POTASSIUM ASPARTATE
     Indication: Hypokalaemia
     Dosage: UNK
     Route: 065
     Dates: start: 20180615
  51. RAMIPRIL [Concomitant]
     Active Substance: RAMIPRIL
     Indication: Hypertension
     Dosage: UNK
     Route: 065
     Dates: start: 20190701
  52. RANITIDINE [Concomitant]
     Active Substance: RANITIDINE
     Indication: Product used for unknown indication
     Dosage: UNK
     Route: 065
     Dates: start: 20180507
  53. DEXAMETHASONE [Concomitant]
     Active Substance: DEXAMETHASONE
     Indication: Product used for unknown indication
     Dosage: UNK
     Route: 065
     Dates: start: 20180502
  54. TACHIPIRINA [Concomitant]
     Active Substance: ACETAMINOPHEN
     Indication: Product used for unknown indication
     Dosage: UNK
     Route: 065
     Dates: start: 20200402
  55. TEICOPLANIN [Concomitant]
     Active Substance: TEICOPLANIN
     Indication: Febrile neutropenia
     Dosage: UNK
     Route: 065
     Dates: start: 20180702
  56. UREA [Concomitant]
     Active Substance: UREA
     Indication: Skin toxicity
     Dosage: UNK
     Route: 065
     Dates: start: 20200415
  57. ZOLOFT [Concomitant]
     Active Substance: SERTRALINE HYDROCHLORIDE
     Indication: Product used for unknown indication
     Dosage: UNK
     Route: 065
     Dates: start: 20160803
  58. KCL [Concomitant]
     Active Substance: POTASSIUM CHLORIDE
     Indication: Hypokalaemia
     Dosage: UNK
     Route: 065
     Dates: start: 20200402
  59. FAMOTIDINE [Concomitant]
     Active Substance: FAMOTIDINE
     Indication: Gastrooesophageal reflux disease
     Dosage: UNK
     Route: 065
     Dates: start: 20210414
  60. Covid-19 vaccine [Concomitant]
     Indication: Product used for unknown indication
     Dosage: UNK
     Route: 065
     Dates: start: 20210414

REACTIONS (13)
  - Febrile neutropenia [Recovered/Resolved]
  - Dysphagia [Recovered/Resolved]
  - Hypokalaemia [Recovered/Resolved]
  - Bone pain [Not Recovered/Not Resolved]
  - Nausea [Recovered/Resolved]
  - Performance status decreased [Not Recovered/Not Resolved]
  - Dysgeusia [Recovered/Resolved]
  - Arthralgia [Recovered/Resolved]
  - Fatigue [Recovered/Resolved]
  - Diarrhoea [Recovered/Resolved]
  - Dysaesthesia [Recovered/Resolved]
  - Skin toxicity [Recovered/Resolved]
  - Palmar-plantar erythrodysaesthesia syndrome [Recovered/Resolved]

NARRATIVE: CASE EVENT DATE: 20180615
